FAERS Safety Report 4443029-X (Version None)
Quarter: 2004Q3

REPORT INFORMATION
  Report Type: 
  Country: None (occurrence: None)
  Receive Date: 20040903
  Receipt Date: 20040527
  Transmission Date: 20050211
  Serious: Yes (Other)
  Sender: FDA-Public Use
  Company Number: 2004UW11108

PATIENT
  Age: 53 Year
  Sex: Female

DRUGS (2)
  1. CRESTOR [Suspect]
     Indication: BLOOD CHOLESTEROL INCREASED
     Dosage: 10 MG
  2. BACTRIN [Concomitant]

REACTIONS (5)
  - HERPES SIMPLEX [None]
  - JAUNDICE [None]
  - PAIN [None]
  - PNEUMONIA [None]
  - URINARY TRACT INFECTION [None]
